FAERS Safety Report 19954416 (Version 1)
Quarter: 2021Q4

REPORT INFORMATION
  Report Type: Report from Study
  Country: US (occurrence: US)
  Receive Date: 20211013
  Receipt Date: 20211013
  Transmission Date: 20220304
  Serious: Yes (Other)
  Sender: FDA-Public Use
  Company Number: US-BAYER-2021A227963

PATIENT
  Age: 8 Year
  Sex: Female

DRUGS (2)
  1. NEXAVAR [Suspect]
     Active Substance: SORAFENIB
     Indication: Hepatic cancer
     Dosage: 200 MG, QD ON MONDAY, WEDNESDAY, THURSDAY, SATURDAY, AND SUNDAY
     Route: 048
  2. NEXAVAR [Suspect]
     Active Substance: SORAFENIB
     Indication: Hepatic cancer
     Dosage: 200 MG, BID ON TUESDAY AND FRIDAY
     Route: 048

REACTIONS (2)
  - Medical procedure [Unknown]
  - Off label use [None]

NARRATIVE: CASE EVENT DATE: 20210928
